FAERS Safety Report 15316109 (Version 9)
Quarter: 2022Q3

REPORT INFORMATION
  Report Type: Report from Study
  Country: CO (occurrence: CO)
  Receive Date: 20180824
  Receipt Date: 20220826
  Transmission Date: 20221027
  Serious: Yes (Hospitalization, Other)
  Sender: FDA-Public Use
  Company Number: CO-ASTELLAS-2018US037808

PATIENT
  Age: 55 Year
  Sex: Female
  Weight: 46 kg

DRUGS (11)
  1. TACROLIMUS [Suspect]
     Active Substance: TACROLIMUS
     Indication: Renal transplant
     Dosage: 8 MG, ONCE DAILY (1 CAPSULE OF 5 MG AND 1 CAPSULE OF 3 MG)
     Route: 048
     Dates: start: 20180429
  2. TACROLIMUS [Suspect]
     Active Substance: TACROLIMUS
     Dosage: 6 MG, ONCE DAILY (2 CAPSULES OF 3 MG)
     Route: 048
     Dates: start: 201804, end: 20190531
  3. TACROLIMUS [Suspect]
     Active Substance: TACROLIMUS
     Dosage: 2 MG, ONCE DAILY (2 CAPSULES OF 1MG)
     Route: 048
     Dates: start: 20190429, end: 201908
  4. TACROLIMUS [Suspect]
     Active Substance: TACROLIMUS
     Dosage: 3 MG, ONCE DAILY (1 CAPSULES OF 3 MG)
     Route: 048
     Dates: start: 20190601
  5. TACROLIMUS [Suspect]
     Active Substance: TACROLIMUS
     Route: 048
     Dates: start: 20190617
  6. TACROLIMUS [Suspect]
     Active Substance: TACROLIMUS
     Dosage: 3 MG, ONCE DAILY (1 CAPSULES OF 3 MG)
     Route: 048
     Dates: start: 201908
  7. TACROLIMUS [Suspect]
     Active Substance: TACROLIMUS
     Dosage: 2 MG (1MG, TAKING 2 CAPSULES), ONCE DAILY
     Route: 048
  8. MYCOPHENOLIC ACID [Concomitant]
     Active Substance: MYCOPHENOLIC ACID
     Indication: Renal transplant
     Dosage: 360 MG, TWICE DAILY 1 TABLET OF 360 MG IN THE MORNING AND 1 TABLET OF 360 MG IN NIGHT
     Route: 048
     Dates: start: 20180429
  9. MYCOPHENOLIC ACID [Concomitant]
     Active Substance: MYCOPHENOLIC ACID
     Dosage: 720 MG AT MORNING 360 MG AT AFTERNOON, TWICE DAILY
     Route: 048
     Dates: start: 20190424
  10. PREDNISOLONE [Concomitant]
     Active Substance: PREDNISOLONE
     Indication: Renal transplant
     Route: 048
     Dates: start: 20190424
  11. CARVEDILOL [Concomitant]
     Active Substance: CARVEDILOL
     Indication: Product used for unknown indication
     Route: 048

REACTIONS (14)
  - Gait disturbance [Recovered/Resolved]
  - Secondary immunodeficiency [Recovered/Resolved]
  - Gait disturbance [Recovered/Resolved]
  - Poisoning [Recovered/Resolved]
  - Dizziness [Recovered/Resolved]
  - Cough [Recovered/Resolved]
  - Diarrhoea [Recovered/Resolved]
  - Vomiting [Recovered/Resolved]
  - Dizziness [Recovered/Resolved]
  - Blood potassium decreased [Recovered/Resolved]
  - Kidney transplant rejection [Recovering/Resolving]
  - Immunosuppressant drug level increased [Recovering/Resolving]
  - Immunosuppressant drug level decreased [Unknown]
  - Circumstance or information capable of leading to medication error [Recovered/Resolved]

NARRATIVE: CASE EVENT DATE: 20180815
